FAERS Safety Report 4897860-7 (Version None)
Quarter: 2006Q1

REPORT INFORMATION
  Report Type: 
  Country: None (occurrence: None)
  Receive Date: 20060201
  Receipt Date: 20060117
  Transmission Date: 20060701
  Serious: Yes (Life-Threatening, Hospitalization)
  Sender: FDA-Public Use
  Company Number: JP-JPN-A200600217

PATIENT
  Age: 68 Year
  Sex: Female
  Weight: 49 kg

DRUGS (2)
  1. ZANTAC [Suspect]
     Indication: PREMEDICATION
     Dosage: 100MG PER DAY
     Route: 042
     Dates: start: 20060116, end: 20060116
  2. LACTEC-G [Concomitant]
     Indication: PREMEDICATION
     Dosage: 500ML PER DAY
     Route: 042
     Dates: start: 20060116, end: 20060116

REACTIONS (5)
  - ANAPHYLACTIC SHOCK [None]
  - BLOOD PRESSURE DECREASED [None]
  - HEADACHE [None]
  - HYPERHIDROSIS [None]
  - VOMITING [None]
